FAERS Safety Report 6906743-X (Version None)
Quarter: 2010Q3

REPORT INFORMATION
  Report Type: 
  Country: None (occurrence: None)
  Receive Date: 20100804
  Receipt Date: 20100728
  Transmission Date: 20110219
  Serious: Yes (Other)
  Sender: FDA-Public Use
  Company Number: US-TEVA-242619USA

PATIENT
  Sex: Female

DRUGS (1)
  1. AVIANE-21 [Suspect]
     Dosage: 0.10MG/0.02MG
     Route: 048
     Dates: start: 20100301

REACTIONS (3)
  - ALOPECIA [None]
  - MENINGITIS VIRAL [None]
  - PYREXIA [None]
